FAERS Safety Report 8326062-7 (Version None)
Quarter: 2012Q2

REPORT INFORMATION
  Report Type: 
  Country: None (occurrence: None)
  Receive Date: 20120501
  Receipt Date: 20120425
  Transmission Date: 20120825
  Serious: Yes (Hospitalization)
  Sender: FDA-Public Use
  Company Number: US-GLAXOSMITHKLINE-A0975150A

PATIENT
  Age: 33 Year
  Sex: Female

DRUGS (5)
  1. METFORMIN HCL [Concomitant]
  2. VITAMIN C [Concomitant]
  3. ALBUTEROL [Concomitant]
  4. SEIZURE MEDICATION [Concomitant]
  5. ADVAIR DISKUS 100/50 [Suspect]
     Indication: CHRONIC OBSTRUCTIVE PULMONARY DISEASE
     Dosage: 2PUFF TWICE PER DAY
     Route: 055
     Dates: start: 20111001

REACTIONS (6)
  - PRODUCT QUALITY ISSUE [None]
  - DYSPNOEA [None]
  - DRUG INEFFECTIVE [None]
  - BLOOD PRESSURE DECREASED [None]
  - APPARENT DEATH [None]
  - HEART RATE DECREASED [None]
